FAERS Safety Report 8943193 (Version 1)
Quarter: 2012Q4

REPORT INFORMATION
  Report Type: 
  Country: MX (occurrence: MX)
  Receive Date: 20121204
  Receipt Date: 20121204
  Transmission Date: 20130627
  Serious: Yes (Other)
  Sender: FDA-Public Use
  Company Number: PHHY2012MX110528

PATIENT
  Age: 84 Year
  Sex: Female

DRUGS (2)
  1. AROPAX [Suspect]
     Indication: DEPRESSION
     Dosage: 20 mg, QD
     Route: 048
     Dates: end: 20121116
  2. CO-DIOVAN [Suspect]
     Indication: HYPERTENSION
     Dosage: 1 DF, QD
     Dates: start: 2007

REACTIONS (4)
  - Dementia [Not Recovered/Not Resolved]
  - Aphasia [Not Recovered/Not Resolved]
  - Movement disorder [Not Recovered/Not Resolved]
  - Hypertension [Unknown]
